FAERS Safety Report 15134167 (Version 2)
Quarter: 2018Q3

REPORT INFORMATION
  Report Type: Report from Study
  Country: CA (occurrence: CA)
  Receive Date: 20180712
  Receipt Date: 20180808
  Transmission Date: 20181010
  Serious: Yes (Hospitalization, Other)
  Sender: FDA-Public Use
  Company Number: PHHY2015CA039023

PATIENT
  Age: 76 Year
  Sex: Male

DRUGS (5)
  1. SANDOSTATIN LAR DEPOT [Suspect]
     Active Substance: OCTREOTIDE ACETATE
     Dosage: 30 MG, QMO (EVERY 4 WEEKS)
     Route: 030
     Dates: start: 20140520
  2. SANDOSTATIN LAR DEPOT [Suspect]
     Active Substance: OCTREOTIDE ACETATE
     Indication: NEUROENDOCRINE TUMOUR
     Dosage: 30 MG, QMO (EVERY 4 WEEKS)
     Route: 030
     Dates: start: 20120121
  3. SANDOSTATIN LAR DEPOT [Suspect]
     Active Substance: OCTREOTIDE ACETATE
     Dosage: 60 MG, QMO (EVERY 4 WEEKS)
     Route: 030
  4. SANDOSTATIN LAR DEPOT [Suspect]
     Active Substance: OCTREOTIDE ACETATE
     Dosage: 60 MG, QMO
     Route: 030
     Dates: start: 20180501
  5. SANDOSTATIN LAR DEPOT [Suspect]
     Active Substance: OCTREOTIDE ACETATE
     Dosage: 30 MG, QMO
     Route: 030
     Dates: start: 20180604

REACTIONS (17)
  - Myocardial infarction [Unknown]
  - Cachexia [Unknown]
  - Blood pressure systolic increased [Unknown]
  - Chest pain [Unknown]
  - Malignant neoplasm progression [Unknown]
  - Balance disorder [Unknown]
  - Fatigue [Unknown]
  - Heart rate decreased [Unknown]
  - Weight decreased [Unknown]
  - Feeling abnormal [Unknown]
  - Blood pressure diastolic decreased [Unknown]
  - Abdominal pain upper [Unknown]
  - Cholecystitis [Unknown]
  - Blood pressure decreased [Unknown]
  - Contusion [Unknown]
  - Faeces discoloured [Unknown]
  - Fall [Unknown]

NARRATIVE: CASE EVENT DATE: 20150327
